FAERS Safety Report 8276500-3 (Version None)
Quarter: 2012Q2

REPORT INFORMATION
  Report Type: 
  Country: None (occurrence: None)
  Receive Date: 20120412
  Receipt Date: 20120405
  Transmission Date: 20120825
  Serious: Yes (Hospitalization, Other)
  Sender: FDA-Public Use
  Company Number: JP-B.I. PHARMACEUTICALS,INC./RIDGEFIELD-2012-BP-02106NB

PATIENT
  Age: 63 Year
  Sex: Male

DRUGS (5)
  1. RABEPRAZOLE SODIUM [Concomitant]
     Indication: GASTROOESOPHAGEAL REFLUX DISEASE
     Dosage: 10 MG
     Route: 048
  2. KIRANGA [Concomitant]
     Indication: HYPERURICAEMIA
     Dosage: 50 MG
     Route: 048
  3. PRADAXA [Suspect]
     Indication: ATRIAL FIBRILLATION
     Dosage: 220 MG
     Route: 048
     Dates: start: 20110630, end: 20120126
  4. INDERAL LA [Concomitant]
     Indication: DEPRESSION
     Dosage: 60 MG
     Route: 048
  5. HALCION [Concomitant]
     Indication: INSOMNIA
     Dosage: 0.25 MG
     Route: 048

REACTIONS (4)
  - LARGE INTESTINE CARCINOMA [None]
  - HAEMOGLOBIN DECREASED [None]
  - ANAEMIA [None]
  - OCCULT BLOOD POSITIVE [None]
